FAERS Safety Report 4952014-0 (Version None)
Quarter: 2006Q1

REPORT INFORMATION
  Report Type: 
  Country: None (occurrence: None)
  Receive Date: 20060320
  Receipt Date: 20060307
  Transmission Date: 20060701
  Serious: Yes (Hospitalization)
  Sender: FDA-Public Use
  Company Number: 2006034131

PATIENT
  Age: 30 Year
  Sex: Male
  Weight: 75 kg

DRUGS (3)
  1. CLINDAMYCIN HCL [Suspect]
     Indication: INFECTION
     Dosage: 1500 MG (500 MG, 3 IN 1 D), ORAL
     Route: 048
  2. QUETIAPINE FUMARATE [Suspect]
     Indication: BIPOLAR DISORDER
     Dosage: 300 MG (300 MG, 1 IN 1 D), ORAL
     Route: 048
     Dates: start: 20051101
  3. DIAZEPAM [Concomitant]

REACTIONS (3)
  - DRUG INTERACTION [None]
  - INSOMNIA [None]
  - PSYCHOTIC DISORDER [None]
